FAERS Safety Report 7287334-0 (Version None)
Quarter: 2011Q1

REPORT INFORMATION
  Report Type: 
  Country: None (occurrence: None)
  Receive Date: 20110207
  Receipt Date: 20110207
  Transmission Date: 20110831
  Serious: No
  Sender: FDA-Public Use
  Company Number: None

PATIENT
  Age: 23 Year
  Sex: Female
  Weight: 71.2147 kg

DRUGS (1)
  1. MIRENA [Suspect]

REACTIONS (5)
  - BREAST TENDERNESS [None]
  - CONSTIPATION [None]
  - IRRITABILITY [None]
  - ABDOMINAL PAIN [None]
  - BACK PAIN [None]
